FAERS Safety Report 20360543 (Version 2)
Quarter: 2022Q1

REPORT INFORMATION
  Report Type: Report from Study
  Country: JP (occurrence: None)
  Receive Date: 20220121
  Receipt Date: 20220204
  Transmission Date: 20220423
  Serious: Yes (Hospitalization)
  Sender: FDA-Public Use
  Company Number: 2021A867361

PATIENT
  Age: 63 Year
  Sex: Female

DRUGS (32)
  1. DURVALUMAB [Suspect]
     Active Substance: DURVALUMAB
     Indication: Endometrial cancer
     Dosage: 1120.0MG ONCE/SINGLE ADMINISTRATION
     Route: 042
     Dates: start: 20211014, end: 20211014
  2. DURVALUMAB [Suspect]
     Active Substance: DURVALUMAB
     Indication: Endometrial cancer
     Dosage: 1120.0MG ONCE/SINGLE ADMINISTRATION
     Route: 042
     Dates: start: 20211104, end: 20211104
  3. CARBOPLATIN [Suspect]
     Active Substance: CARBOPLATIN
     Indication: Endometrial cancer
     Dosage: 606.0MG ONCE/SINGLE ADMINISTRATION
     Route: 042
     Dates: start: 20211014, end: 20211014
  4. CARBOPLATIN [Suspect]
     Active Substance: CARBOPLATIN
     Indication: Endometrial cancer
     Dosage: 606.0MG ONCE/SINGLE ADMINISTRATION
     Route: 042
     Dates: start: 20211104, end: 20211104
  5. PACLITAXEL [Suspect]
     Active Substance: PACLITAXEL
     Indication: Endometrial cancer
     Dosage: 175.0MG/M2 ONCE/SINGLE ADMINISTRATION
     Route: 042
     Dates: start: 20211014, end: 20211014
  6. PACLITAXEL [Suspect]
     Active Substance: PACLITAXEL
     Indication: Endometrial cancer
     Dosage: 175.0MG/M2 ONCE/SINGLE ADMINISTRATION
     Route: 042
     Dates: start: 20211104, end: 20211104
  7. LOXOPROFEN SODIUM [Concomitant]
     Active Substance: LOXOPROFEN SODIUM
     Indication: Pain
     Dosage: 60.0MG AS REQUIRED
     Route: 048
  8. REBAMIPIDE [Concomitant]
     Active Substance: REBAMIPIDE
     Indication: Gastritis prophylaxis
     Dosage: 100.0MG AS REQUIRED
     Route: 048
  9. PITAVASTATIN CALCIUM [Concomitant]
     Active Substance: PITAVASTATIN CALCIUM
     Indication: Hyperlipidaemia
     Route: 048
  10. KETOPROFEN [Concomitant]
     Active Substance: KETOPROFEN
     Indication: Pain
     Dosage: 40.0MG AS REQUIRED
     Route: 061
  11. CARTEOLOL HYDROCHLORIDE [Concomitant]
     Active Substance: CARTEOLOL HYDROCHLORIDE
     Indication: Glaucoma
     Route: 047
  12. GLYCOSAMINOGLYCANS [Concomitant]
     Active Substance: GLYCOSAMINOGLYCANS
     Indication: Rash
     Dosage: 1 APPLICATION PRN
     Route: 061
  13. HYALURONATE SODIUM [Concomitant]
     Active Substance: HYALURONATE SODIUM
     Indication: Dry eye
     Dosage: 1.0DF AS REQUIRED
     Route: 047
  14. MAGNESIUM OXIDE [Concomitant]
     Active Substance: MAGNESIUM OXIDE
     Indication: Constipation
     Dosage: 330.0MG AS REQUIRED
     Route: 048
     Dates: start: 20211013
  15. LOXOPROFEN SODIUM [Concomitant]
     Active Substance: LOXOPROFEN SODIUM
     Indication: Pain
     Dosage: 60.0MG AS REQUIRED
     Route: 048
     Dates: start: 20211013
  16. LOXOPROFEN SODIUM [Concomitant]
     Active Substance: LOXOPROFEN SODIUM
     Indication: Pain
     Dosage: 100.0MG AS REQUIRED
     Route: 061
     Dates: start: 20211013
  17. REBAMIPIDE [Concomitant]
     Active Substance: REBAMIPIDE
     Indication: Gastritis prophylaxis
     Dosage: 100.0MG AS REQUIRED
     Route: 048
     Dates: start: 20211013
  18. PREGABALIN [Concomitant]
     Active Substance: PREGABALIN
     Indication: Pain
     Route: 048
     Dates: start: 20211013
  19. FAMOTIDINE [Concomitant]
     Active Substance: FAMOTIDINE
     Indication: Premedication
     Dosage: 20 MG PER CHEMOTHERAPY
     Route: 042
     Dates: start: 20211014
  20. DEXAMETHASONE SODIUM PHOSPHATE [Concomitant]
     Active Substance: DEXAMETHASONE SODIUM PHOSPHATE
     Indication: Premedication
     Dosage: 13.2 MG PER CHEMOTHERAPY
     Route: 042
     Dates: start: 20211014
  21. GRANISETRON [Concomitant]
     Active Substance: GRANISETRON
     Indication: Premedication
     Dosage: 3 MG PER CHEMOTHERAPY
     Route: 042
     Dates: start: 20211014
  22. DIPHENHYDRAMINE [Concomitant]
     Active Substance: DIPHENHYDRAMINE
     Indication: Premedication
     Dosage: 50 MG PER CHEMOTHERAPY
     Route: 042
     Dates: start: 20211014
  23. DIPHENHYDRAMINE [Concomitant]
     Active Substance: DIPHENHYDRAMINE
     Indication: Pruritus
     Dosage: 50 MG PER CHEMOTHERAPY
     Route: 042
     Dates: start: 20211014
  24. DIPHENHYDRAMINE [Concomitant]
     Active Substance: DIPHENHYDRAMINE
     Indication: Premedication
     Dosage: 1.0% AS REQUIRED
     Route: 061
     Dates: start: 20211027
  25. DIPHENHYDRAMINE [Concomitant]
     Active Substance: DIPHENHYDRAMINE
     Indication: Pruritus
     Dosage: 1.0% AS REQUIRED
     Route: 061
     Dates: start: 20211027
  26. APREPITANT [Concomitant]
     Active Substance: APREPITANT
     Indication: Premedication
     Dosage: 250 MG PER CHEMOTHERAPY
     Route: 042
     Dates: start: 20211014
  27. CALCIUM CARBONATE\CHOLECALCIFEROL\MAGNESIUM CARBONATE [Concomitant]
     Active Substance: CALCIUM CARBONATE\CHOLECALCIFEROL\MAGNESIUM CARBONATE
     Indication: Hypocalcaemia
     Route: 048
     Dates: start: 20211014
  28. FEXOFENADINE HYDROCHLORIDE [Concomitant]
     Active Substance: FEXOFENADINE HYDROCHLORIDE
     Indication: Pruritus
     Dosage: 60.0MG AS REQUIRED
     Route: 048
     Dates: start: 20211027
  29. DENOSUMAB [Concomitant]
     Active Substance: DENOSUMAB
     Indication: Metastases to bone
     Dosage: 120.0MG ONCE/SINGLE ADMINISTRATION
     Route: 058
     Dates: start: 20211015, end: 20211015
  30. DENOSUMAB [Concomitant]
     Active Substance: DENOSUMAB
     Indication: Metastases to bone
     Dosage: 120.0MG ONCE/SINGLE ADMINISTRATION
     Route: 058
     Dates: start: 20211117, end: 20211117
  31. FILGRASTIM [Concomitant]
     Active Substance: FILGRASTIM
     Indication: Neutrophil count decreased
     Dosage: 75.0UG ONCE/SINGLE ADMINISTRATION
     Route: 042
     Dates: start: 20211027, end: 20211027
  32. FILGRASTIM [Concomitant]
     Active Substance: FILGRASTIM
     Indication: Neutrophil count decreased
     Dosage: 75.0UG ONCE/SINGLE ADMINISTRATION
     Route: 042
     Dates: start: 20211117, end: 20211117

REACTIONS (1)
  - Drug-induced liver injury [Not Recovered/Not Resolved]

NARRATIVE: CASE EVENT DATE: 20211124
